FAERS Safety Report 7979765-8 (Version None)
Quarter: 2011Q4

REPORT INFORMATION
  Report Type: 
  Country: None (occurrence: None)
  Receive Date: 20111214
  Receipt Date: 20111213
  Transmission Date: 20120403
  Serious: Yes (Other)
  Sender: FDA-Public Use
  Company Number: ES-ROCHE-1021714

PATIENT
  Age: 80 Year
  Sex: Male

DRUGS (1)
  1. XELODA [Suspect]
     Indication: COLON NEOPLASM
     Route: 048
     Dates: start: 20110823, end: 20111011

REACTIONS (1)
  - AMAUROSIS FUGAX [None]
